FAERS Safety Report 16082964 (Version 1)
Quarter: 2019Q1

REPORT INFORMATION
  Report Type: Spontaneous
  Country: JP (occurrence: JP)
  Receive Date: 20190318
  Receipt Date: 20190318
  Transmission Date: 20190418
  Serious: No
  Sender: FDA-Public Use
  Company Number: JP-LUPIN PHARMACEUTICALS INC.-2019-00526

PATIENT
  Sex: Male

DRUGS (7)
  1. VORICONAZOLE 50MG TABLET [Suspect]
     Active Substance: VORICONAZOLE
     Dosage: 200 MILLIGRAM, QD
     Route: 048
     Dates: start: 20181226
  2. BAYASPIRIN [Concomitant]
     Active Substance: ASPIRIN
     Indication: PRODUCT USED FOR UNKNOWN INDICATION
     Dosage: 200 MILLIGRAM, QD
     Route: 048
  3. LANSOPRAZOLE. [Concomitant]
     Active Substance: LANSOPRAZOLE
     Indication: PRODUCT USED FOR UNKNOWN INDICATION
     Dosage: 30 MILLIGRAM, QD
     Route: 048
  4. VORICONAZOLE 50MG TABLET [Suspect]
     Active Substance: VORICONAZOLE
     Dosage: 300 MILLIGRAM, QD
     Route: 048
     Dates: start: 20181217, end: 20181225
  5. VORICONAZOLE 50MG TABLET [Suspect]
     Active Substance: VORICONAZOLE
     Indication: BRONCHOPULMONARY ASPERGILLOSIS
     Dosage: 400 MILLIGRAM, QD
     Route: 048
     Dates: start: 20181207, end: 20181210
  6. SENNARIDE [Concomitant]
     Active Substance: SENNOSIDES A AND B
     Indication: PRODUCT USED FOR UNKNOWN INDICATION
     Dosage: 24 MILLIGRAM, QD
     Route: 048
  7. PRAVASTATIN. [Concomitant]
     Active Substance: PRAVASTATIN
     Indication: PRODUCT USED FOR UNKNOWN INDICATION
     Dosage: 5 MILLIGRAM, QD
     Route: 048

REACTIONS (2)
  - Visual impairment [Unknown]
  - Tinnitus [Unknown]

NARRATIVE: CASE EVENT DATE: 20181210
